FAERS Safety Report 7827670-X (Version None)
Quarter: 2011Q4

REPORT INFORMATION
  Report Type: 
  Country: None (occurrence: None)
  Receive Date: 20111020
  Receipt Date: 20111011
  Transmission Date: 20120403
  Serious: Yes (Hospitalization, Other)
  Sender: FDA-Public Use
  Company Number: US-ASTRAZENECA-2011SE55858

PATIENT
  Age: 59 Year
  Sex: Male

DRUGS (8)
  1. ULTRAM [Concomitant]
  2. HYDROCODONE BITARTRATE [Concomitant]
  3. PROTONIX [Concomitant]
  4. TENORMIN [Suspect]
     Route: 048
  5. NEXIUM [Suspect]
     Route: 048
  6. ASPIRIN [Concomitant]
  7. DEXILANT [Concomitant]
  8. FLEXERIL [Concomitant]

REACTIONS (16)
  - PANCREATITIS [None]
  - OESOPHAGITIS [None]
  - RENAL CYST [None]
  - INGUINAL HERNIA [None]
  - DIARRHOEA [None]
  - GASTROINTESTINAL HAEMORRHAGE [None]
  - BARRETT'S OESOPHAGUS [None]
  - ILL-DEFINED DISORDER [None]
  - DRUG DOSE OMISSION [None]
  - POLYP COLORECTAL [None]
  - DUODENAL ULCER [None]
  - ABDOMINAL PAIN [None]
  - PAIN [None]
  - ABDOMINAL PAIN UPPER [None]
  - NAUSEA [None]
  - VOMITING [None]
